FAERS Safety Report 23535353 (Version 2)
Quarter: 2024Q1

REPORT INFORMATION
  Report Type: Report from Study
  Country: MX (occurrence: MX)
  Receive Date: 20240218
  Receipt Date: 20240305
  Transmission Date: 20240409
  Serious: Yes (Other)
  Sender: FDA-Public Use
  Company Number: MX-002147023-NVSC2024MX032204

PATIENT
  Age: 62 Year
  Sex: Female
  Weight: 68 kg

DRUGS (4)
  1. RIBOCICLIB [Suspect]
     Active Substance: RIBOCICLIB
     Indication: Breast cancer
     Dosage: 3 DOSAGE FORM, Q24H (200 MG)
     Route: 048
     Dates: start: 202401
  2. EXEMESTANE [Concomitant]
     Active Substance: EXEMESTANE
     Indication: Breast cancer
     Dosage: 1 DOSAGE FORM, QD
     Route: 048
     Dates: start: 2023
  3. OMEPRAZOLE [Concomitant]
     Active Substance: OMEPRAZOLE
     Indication: Abdominal discomfort
     Dosage: 1 DOSAGE FORM (20 MG), QD
     Route: 048
     Dates: start: 202311
  4. FULVESTRANT [Concomitant]
     Active Substance: FULVESTRANT
     Indication: Breast cancer
     Dosage: 2 DOSAGE FORM (EVERY 28 DAYS)
     Route: 030
     Dates: start: 202311

REACTIONS (10)
  - Poisoning [Unknown]
  - Urticaria [Recovering/Resolving]
  - Body temperature increased [Recovered/Resolved]
  - Pruritus [Recovering/Resolving]
  - Feeling hot [Recovering/Resolving]
  - Discomfort [Unknown]
  - Diarrhoea [Recovering/Resolving]
  - Nausea [Recovering/Resolving]
  - Abdominal discomfort [Unknown]
  - Dry skin [Not Recovered/Not Resolved]

NARRATIVE: CASE EVENT DATE: 20240101
